FAERS Safety Report 16577872 (Version 1)
Quarter: 2019Q3

REPORT INFORMATION
  Report Type: Spontaneous
  Country: US (occurrence: US)
  Receive Date: 20190716
  Receipt Date: 20190716
  Transmission Date: 20191004
  Serious: No
  Sender: FDA-Public Use
  Company Number: US-PFIZER INC-2019256460

PATIENT
  Age: 70 Year
  Sex: Male
  Weight: 96.25 kg

DRUGS (4)
  1. FENOFIBRATE. [Concomitant]
     Active Substance: FENOFIBRATE
     Indication: BLOOD CHOLESTEROL
     Dosage: 160 MG, DAILY
     Route: 048
  2. ZYVOX [Suspect]
     Active Substance: LINEZOLID
     Indication: KIDNEY INFECTION
  3. ZYVOX [Suspect]
     Active Substance: LINEZOLID
     Indication: OSTEOMYELITIS
     Dosage: 600 MG, 2X/DAY
     Route: 048
     Dates: start: 20190612
  4. BAYER ASPIRIN [Concomitant]
     Active Substance: ASPIRIN
     Indication: STENT PLACEMENT
     Dosage: 81 MG, DAILY
     Route: 048

REACTIONS (4)
  - Product use in unapproved indication [Unknown]
  - Product prescribing issue [Unknown]
  - Off label use [Unknown]
  - Drug effective for unapproved indication [Unknown]

NARRATIVE: CASE EVENT DATE: 20190612
